FAERS Safety Report 19930514 (Version 2)
Quarter: 2021Q4

REPORT INFORMATION
  Report Type: Report from Study
  Country: None (occurrence: US)
  Receive Date: 20211007
  Receipt Date: 20211010
  Transmission Date: 20220303
  Serious: Yes (Hospitalization)
  Sender: FDA-Public Use
  Company Number: US-ABBVIE-21K-163-4109077-00

PATIENT
  Age: 65 Year
  Sex: Female
  Weight: 100.33 kg

DRUGS (4)
  1. HUMIRA [Suspect]
     Active Substance: ADALIMUMAB
     Indication: Rheumatoid arthritis
     Route: 058
  2. PFIZER-BIONTECH COVID-19 VACCINE [Concomitant]
     Active Substance: TOZINAMERAN
     Indication: COVID-19 immunisation
     Dosage: PFIZER BIONTECH COVID-19 VACCINE-FIRST DOSE
     Route: 030
     Dates: start: 20210318, end: 20210318
  3. PFIZER-BIONTECH COVID-19 VACCINE [Concomitant]
     Active Substance: TOZINAMERAN
     Dosage: PFIZER BIONTECH COVID-19 VACCINE-SECOND DOSE
     Route: 030
     Dates: start: 20210325, end: 20210325
  4. TAGAMET [Concomitant]
     Active Substance: CIMETIDINE
     Indication: Product used for unknown indication

REACTIONS (5)
  - Emotional disorder [Recovering/Resolving]
  - Depression [Not Recovered/Not Resolved]
  - Panic attack [Not Recovered/Not Resolved]
  - Palpitations [Not Recovered/Not Resolved]
  - Arthralgia [Not Recovered/Not Resolved]

NARRATIVE: CASE EVENT DATE: 20210701
